FAERS Safety Report 13539835 (Version 1)
Quarter: 2017Q2

REPORT INFORMATION
  Report Type: Spontaneous
  Country: US (occurrence: US)
  Receive Date: 20170512
  Receipt Date: 20170512
  Transmission Date: 20170830
  Serious: No
  Sender: FDA-Public Use
  Company Number: US-JNJFOC-20170430169

PATIENT
  Sex: Male

DRUGS (1)
  1. INVEGA SUSTENNA [Suspect]
     Active Substance: PALIPERIDONE PALMITATE
     Indication: SCHIZOAFFECTIVE DISORDER
     Route: 030
     Dates: start: 2013

REACTIONS (7)
  - Hypokinesia [Unknown]
  - Psychomotor hyperactivity [Unknown]
  - Mania [Unknown]
  - Reading disorder [Unknown]
  - Movement disorder [Unknown]
  - Weight increased [Unknown]
  - Dysgraphia [Unknown]
